FAERS Safety Report 11883929 (Version 1)
Quarter: 2016Q1

REPORT INFORMATION
  Report Type: Spontaneous
  Country: FR (occurrence: FR)
  Receive Date: 20160102
  Receipt Date: 20160102
  Transmission Date: 20160526
  Serious: Yes (Other)
  Sender: FDA-Public Use
  Company Number: FR-BRISTOL-MYERS SQUIBB COMPANY-10851335

PATIENT
  Sex: Female

DRUGS (4)
  1. RETROVIR [Suspect]
     Active Substance: ZIDOVUDINE
     Indication: HIV TEST POSITIVE
     Dosage: UNK
     Route: 042
     Dates: start: 199908
  2. ZERIT [Suspect]
     Active Substance: STAVUDINE
     Indication: HIV TEST POSITIVE
     Dosage: UNK
     Route: 048
  3. INVIRASE [Suspect]
     Active Substance: SAQUINAVIR MESYLATE
     Indication: HIV TEST POSITIVE
     Route: 048
  4. VIDEX [Suspect]
     Active Substance: DIDANOSINE
     Indication: HIV TEST POSITIVE
     Route: 048

REACTIONS (5)
  - Glomerulonephritis [Unknown]
  - Premature labour [Recovered/Resolved]
  - Vomiting [Unknown]
  - Maternal exposure during pregnancy [Recovered/Resolved]
  - Caesarean section [Recovered/Resolved]

NARRATIVE: CASE EVENT DATE: 1999
